FAERS Safety Report 17923480 (Version 3)
Quarter: 2020Q3

REPORT INFORMATION
  Report Type: Spontaneous
  Country: SI (occurrence: SI)
  Receive Date: 20200622
  Receipt Date: 20200703
  Transmission Date: 20201103
  Serious: Yes (Other)
  Sender: FDA-Public Use
  Company Number: SI-JNJFOC-20200617355

PATIENT

DRUGS (3)
  1. TREMFYA [Suspect]
     Active Substance: GUSELKUMAB
  2. STELARA [Suspect]
     Active Substance: USTEKINUMAB
     Indication: PSORIASIS
     Route: 065
  3. TREMFYA [Suspect]
     Active Substance: GUSELKUMAB
     Indication: PSORIASIS
     Route: 058

REACTIONS (17)
  - Colitis ulcerative [Unknown]
  - Injection site reaction [Unknown]
  - Vomiting [Unknown]
  - Drug intolerance [Unknown]
  - Blood test abnormal [Unknown]
  - Fatigue [Unknown]
  - Crohn^s disease [Unknown]
  - Pain [Unknown]
  - Urticaria [Unknown]
  - Dyspnoea [Unknown]
  - Nervous system disorder [Unknown]
  - Infection [Unknown]
  - Headache [Unknown]
  - Hypersensitivity [Unknown]
  - Pancreatic carcinoma [Unknown]
  - Drug ineffective [Unknown]
  - Neoplasm malignant [Unknown]
